FAERS Safety Report 11935661 (Version 2)
Quarter: 2016Q1

REPORT INFORMATION
  Report Type: Spontaneous
  Country: US (occurrence: US)
  Receive Date: 20160121
  Receipt Date: 20160127
  Transmission Date: 20160526
  Serious: No
  Sender: FDA-Public Use
  Company Number: US-HORIZON-RAV-0006-2016

PATIENT
  Age: 12 Year
  Sex: Female

DRUGS (2)
  1. RAVICTI [Suspect]
     Active Substance: GLYCEROL PHENYLBUTYRATE
     Indication: ORNITHINE TRANSCARBAMOYLASE DEFICIENCY
     Dosage: 5 ML THREE TIMES DAILY
  2. CITRULLINE [Concomitant]
     Active Substance: CITRULLINE

REACTIONS (3)
  - Treatment noncompliance [Recovered/Resolved]
  - Drug dose omission [Recovered/Resolved]
  - Amino acid level increased [Recovered/Resolved]
